FAERS Safety Report 4957008-7 (Version None)
Quarter: 2006Q1

REPORT INFORMATION
  Report Type: 
  Country: None (occurrence: None)
  Receive Date: 20060329
  Receipt Date: 20060317
  Transmission Date: 20060701
  Serious: Yes (Hospitalization, Other)
  Sender: FDA-Public Use
  Company Number: US-AVENTIS-200612838US

PATIENT
  Sex: Male

DRUGS (5)
  1. LANTUS [Suspect]
     Dosage: DOSE UNIT: UNITS
     Dates: start: 20050101
  2. AMARYL [Concomitant]
  3. SERUMLIPIDREDUCING AGENTS [Concomitant]
     Dosage: DOSE: UNK
  4. ANTIHYPERTENSIVES [Concomitant]
     Dosage: DOSE: UNK
  5. HUMALIN [Concomitant]
     Dosage: DOSE: UNK

REACTIONS (10)
  - BLOOD GLUCOSE DECREASED [None]
  - BLOOD GLUCOSE INCREASED [None]
  - COMA [None]
  - DIABETES MELLITUS INADEQUATE CONTROL [None]
  - DRUG INEFFECTIVE [None]
  - FATIGUE [None]
  - HEADACHE [None]
  - HYPOGLYCAEMIA UNAWARENESS [None]
  - LOSS OF CONSCIOUSNESS [None]
  - SOMNOLENCE [None]
